FAERS Safety Report 6405272-X (Version None)
Quarter: 2009Q4

REPORT INFORMATION
  Report Type: 
  Country: None (occurrence: None)
  Receive Date: 20091014
  Receipt Date: 20090930
  Transmission Date: 20100525
  Serious: Yes (Other)
  Sender: FDA-Public Use
  Company Number: 2009AC000046

PATIENT
  Age: 37 Year
  Sex: Male

DRUGS (17)
  1. DIGOXIN [Suspect]
     Dosage: 0.06 MG; QD; PO
     Route: 048
  2. WARFARIN SODIUM [Concomitant]
  3. ATACAND [Concomitant]
  4. FERROUS SULFATE TAB [Concomitant]
  5. ISOPROLOL [Concomitant]
  6. ZINC [Concomitant]
  7. ASCORBIC ACID [Concomitant]
  8. LASIX [Concomitant]
  9. INSPRA [Concomitant]
  10. AMIODARONE [Concomitant]
  11. PREVACID [Concomitant]
  12. TEMAZEPAM [Concomitant]
  13. AZMACORT [Concomitant]
  14. POTASSIUM CHLORIDE [Concomitant]
  15. FLUTICASONE [Concomitant]
  16. METOCLOPRAMIDE [Concomitant]
  17. ZYRTEC [Concomitant]

REACTIONS (10)
  - ANHEDONIA [None]
  - ANXIETY [None]
  - DEFORMITY [None]
  - DEVICE MALFUNCTION [None]
  - ECONOMIC PROBLEM [None]
  - INJURY [None]
  - PAIN [None]
  - SYNCOPE [None]
  - THERAPEUTIC AGENT TOXICITY [None]
  - VENTRICULAR TACHYCARDIA [None]
